FAERS Safety Report 4696323-1 (Version None)
Quarter: 2005Q2

REPORT INFORMATION
  Report Type: 
  Country: None (occurrence: None)
  Receive Date: 20050620
  Receipt Date: 20050607
  Transmission Date: 20051028
  Serious: Yes (Other)
  Sender: FDA-Public Use
  Company Number: 2005087347

PATIENT
  Sex: Female

DRUGS (4)
  1. CELEBREX [Suspect]
     Indication: ILL-DEFINED DISORDER
     Dosage: ORAL
     Route: 048
  2. ZOLOFT [Suspect]
     Indication: ILL-DEFINED DISORDER
     Dosage: ORAL
     Route: 048
  3. DETROL [Suspect]
     Indication: ILL-DEFINED DISORDER
  4. DETROL LA [Suspect]
     Indication: ILL-DEFINED DISORDER

REACTIONS (3)
  - BACK DISORDER [None]
  - BLADDER DISORDER [None]
  - DRUG INEFFECTIVE [None]
